FAERS Safety Report 4406730-X (Version None)
Quarter: 2004Q3

REPORT INFORMATION
  Report Type: 
  Country: None (occurrence: None)
  Receive Date: 20040715
  Receipt Date: 20040706
  Transmission Date: 20050211
  Serious: Yes (Other)
  Sender: FDA-Public Use
  Company Number: 2004-07-0170

PATIENT
  Age: 39 Year
  Sex: Female
  Weight: 67 kg

DRUGS (4)
  1. MOMETASONE FUROATE [Suspect]
     Indication: DERMATITIS CONTACT
     Dosage: 0.1% BID TOP -DERM
     Dates: start: 20040528
  2. MOMETASONE FUROATE [Suspect]
     Indication: ECZEMA
     Dosage: 0.1% BID TOP -DERM
     Dates: start: 20040528
  3. ZAMENE (DEFLAZACORT) TABLETS [Suspect]
     Indication: DERMATITIS CONTACT
     Dosage: 30 MG QD ORAL
     Route: 048
     Dates: start: 20040528, end: 20040529
  4. ZAMENE (DEFLAZACORT) TABLETS [Suspect]
     Indication: ECZEMA
     Dosage: 30 MG QD ORAL
     Route: 048
     Dates: start: 20040528, end: 20040529

REACTIONS (1)
  - LARYNGEAL OEDEMA [None]
